FAERS Safety Report 13399897 (Version 1)
Quarter: 2017Q2

REPORT INFORMATION
  Report Type: Spontaneous
  Country: US (occurrence: US)
  Receive Date: 20170404
  Receipt Date: 20170404
  Transmission Date: 20170830
  Serious: Yes (Hospitalization)
  Sender: FDA-Public Use
  Company Number: None

PATIENT
  Age: 70 Year
  Sex: Male
  Weight: 86.91 kg

DRUGS (1)
  1. GABAPENTIN. [Suspect]
     Active Substance: GABAPENTIN
     Indication: DIABETIC NEUROPATHY
     Route: 048
     Dates: start: 20161229, end: 20170103

REACTIONS (5)
  - Syncope [None]
  - Acute kidney injury [None]
  - Fall [None]
  - Asthenia [None]
  - Gait disturbance [None]

NARRATIVE: CASE EVENT DATE: 20170106
